FAERS Safety Report 7795442-0 (Version None)
Quarter: 2011Q4

REPORT INFORMATION
  Report Type: 
  Country: None (occurrence: None)
  Receive Date: 20111004
  Receipt Date: 20110926
  Transmission Date: 20120403
  Serious: Yes (Other)
  Sender: FDA-Public Use
  Company Number: US-ACTELION-A-US2011-54626

PATIENT

DRUGS (13)
  1. DIGOXIN [Concomitant]
  2. METOLAZONE [Concomitant]
  3. DILTIAZEM HCL [Concomitant]
  4. SYNTHROID [Concomitant]
  5. CILOSTAZOL [Concomitant]
  6. PREDNISONE [Concomitant]
  7. ALKA SELTZER [Concomitant]
  8. TRIAMCINOLONE [Concomitant]
  9. TRACLEER [Suspect]
     Indication: PULMONARY ARTERIAL HYPERTENSION
     Dosage: 125 MG, BID
     Route: 048
     Dates: start: 20090201
  10. TYLENOL-500 [Concomitant]
  11. ASPIRIN [Concomitant]
  12. BUMETANIDE [Concomitant]
  13. IMODIUM [Concomitant]

REACTIONS (2)
  - BLINDNESS UNILATERAL [None]
  - OCULAR VASCULAR DISORDER [None]
